FAERS Safety Report 5277572-0 (Version None)
Quarter: 2007Q1

REPORT INFORMATION
  Report Type: 
  Country: None (occurrence: None)
  Receive Date: 20070321
  Receipt Date: 20070312
  Transmission Date: 20070707
  Serious: Yes (Other)
  Sender: FDA-Public Use
  Company Number: CHPA2007US03688

PATIENT
  Age: 51 Year
  Sex: Female

DRUGS (8)
  1. NICOTINE [Suspect]
     Indication: SMOKING CESSATION THERAPY
     Dosage: 28 MG, QD, TRANSDERMAL, 14 MG QD, TRANSDERMAL
     Route: 062
     Dates: start: 20070221, end: 20070309
  2. NICOTINE [Suspect]
     Indication: SMOKING CESSATION THERAPY
     Dosage: 28 MG, QD, TRANSDERMAL, 14 MG QD, TRANSDERMAL
     Route: 062
     Dates: start: 20070309, end: 20070310
  3. PROTONIX [Concomitant]
  4. SIMVASTATIN [Concomitant]
  5. EFFEXOR [Concomitant]
  6. TOPROL-XL [Concomitant]
  7. LANTUS [Concomitant]
  8. ASPIRIN [Concomitant]

REACTIONS (6)
  - ABNORMAL DREAMS [None]
  - DEPRESSION [None]
  - FEELING ABNORMAL [None]
  - HALLUCINATION [None]
  - INSOMNIA [None]
  - OVERDOSE [None]
